FAERS Safety Report 10045512 (Version 4)
Quarter: 2014Q2

REPORT INFORMATION
  Report Type: Spontaneous
  Country: DE (occurrence: DE)
  Receive Date: 20140328
  Receipt Date: 20140609
  Transmission Date: 20141212
  Serious: Yes (Death, Hospitalization, Other)
  Sender: FDA-Public Use
  Company Number: DE-GILEAD-2014-0097690

PATIENT
  Age: 61 Year
  Sex: Female
  Weight: 90 kg

DRUGS (13)
  1. SOVALDI [Suspect]
     Indication: CHRONIC HEPATITIS C
     Dosage: 400 MG, UNK
     Route: 048
     Dates: start: 20140304
  2. COPEGUS [Concomitant]
     Indication: CHRONIC HEPATITIS C
     Dosage: 1200 DF, UNK
     Route: 048
     Dates: start: 20140304
  3. PEGASYS [Concomitant]
     Indication: CHRONIC HEPATITIS C
     Dosage: 180 ?G, UNK
     Route: 058
     Dates: start: 20140304
  4. PANTOZOL                           /01263204/ [Concomitant]
     Indication: HEPATIC CIRRHOSIS
     Dosage: 40 DF, UNK
     Route: 048
     Dates: start: 2011
  5. CIPRALEX                           /01588502/ [Concomitant]
     Indication: DEPRESSION
     Dosage: 15 DF, UNK
     Route: 048
     Dates: start: 2011
  6. SPIRONOLACTON [Concomitant]
     Indication: HEPATIC CIRRHOSIS
     Dosage: 100 DF, UNK
     Route: 048
     Dates: start: 2011
  7. NEUROBION                          /00091901/ [Concomitant]
  8. CARVEDILOL [Concomitant]
  9. OLMETEC [Concomitant]
  10. DOCITON [Concomitant]
  11. BIFITERAL [Concomitant]
  12. TILIDIN [Concomitant]
  13. ARCOXIA [Concomitant]

REACTIONS (4)
  - Multi-organ failure [Fatal]
  - Acute hepatic failure [Fatal]
  - Lactic acidosis [Fatal]
  - Confusional state [Unknown]
